FAERS Safety Report 22588495 (Version 2)
Quarter: 2023Q2

REPORT INFORMATION
  Report Type: Report from Study
  Country: CA (occurrence: CA)
  Receive Date: 20230612
  Receipt Date: 20230617
  Transmission Date: 20230721
  Serious: Yes (Other)
  Sender: FDA-Public Use
  Company Number: CA-002147023-NVSC2022CA254651

PATIENT
  Sex: Male

DRUGS (9)
  1. COSENTYX [Suspect]
     Active Substance: SECUKINUMAB
     Indication: Psoriasis
     Dosage: 300 MG
     Route: 058
     Dates: start: 20200612, end: 20200710
  2. COSENTYX [Suspect]
     Active Substance: SECUKINUMAB
     Dosage: 300 MG
     Route: 058
     Dates: start: 20200810
  3. COSENTYX [Suspect]
     Active Substance: SECUKINUMAB
     Dosage: UNK, QMO
     Route: 065
  4. CLOBETASOL [Concomitant]
     Active Substance: CLOBETASOL
     Indication: Psoriasis
     Dosage: UNK
     Route: 065
     Dates: start: 20210309
  5. CLOBETASOL [Concomitant]
     Active Substance: CLOBETASOL
     Dosage: 1 DOSAGE FORM, QD (1 APPLICATION PRN)
     Route: 065
  6. MAXIDEX [Concomitant]
     Active Substance: DEXAMETHASONE
     Indication: Psoriasis
     Dosage: UNK
     Route: 065
     Dates: start: 20201208
  7. MAXIDEX [Concomitant]
     Active Substance: DEXAMETHASONE
     Dosage: UNK, BID
     Route: 065
     Dates: start: 202210
  8. PROTOPIC [Concomitant]
     Active Substance: TACROLIMUS
     Indication: Psoriasis
     Dosage: UNK
     Route: 065
     Dates: start: 20211130
  9. PROTOPIC [Concomitant]
     Active Substance: TACROLIMUS
     Dosage: 1 DOSAGE FORM, PRN
     Route: 065

REACTIONS (3)
  - Infective chondritis [Recovered/Resolved]
  - Carbuncle [Recovered/Resolved]
  - Tinea pedis [Recovered/Resolved]

NARRATIVE: CASE EVENT DATE: 20220901
